FAERS Safety Report 7952188 (Version 3)
Quarter: 2016Q2

REPORT INFORMATION
  Report Type: Report from Study
  Country: US (occurrence: US)
  Receive Date: 20110519
  Receipt Date: 20160619
  Transmission Date: 20160815
  Serious: Yes (Hospitalization)
  Sender: FDA-Public Use
  Company Number: US-JNJFOC-20110503477

PATIENT
  Age: 13 Year
  Sex: Male
  Weight: 50.6 kg

DRUGS (12)
  1. VITAMIN D [Concomitant]
     Active Substance: CHOLECALCIFEROL
  2. MULTIVITAMINS [Concomitant]
     Active Substance: VITAMINS
  3. BUDESONIDE. [Concomitant]
     Active Substance: BUDESONIDE
  4. VERAMYST NOS [Concomitant]
  5. 5-ASA [Concomitant]
     Active Substance: MESALAMINE
  6. RIFAXIMIN [Concomitant]
     Active Substance: RIFAXIMIN
  7. SINGULAIR [Concomitant]
     Active Substance: MONTELUKAST SODIUM
  8. HUMIRA [Concomitant]
     Active Substance: ADALIMUMAB
     Dates: start: 200804
  9. FOLIC ACID. [Concomitant]
     Active Substance: FOLIC ACID
  10. CALCIUM [Concomitant]
     Active Substance: CALCIUM
  11. REMICADE [Suspect]
     Active Substance: INFLIXIMAB
     Indication: CROHN^S DISEASE
     Route: 042
     Dates: start: 200505, end: 20080314
  12. MECLIZINE [Concomitant]
     Active Substance: MECLIZINE HYDROCHLORIDE

REACTIONS (1)
  - Crohn^s disease [Recovered/Resolved]

NARRATIVE: CASE EVENT DATE: 20100921
